FAERS Safety Report 24285861 (Version 2)
Quarter: 2025Q1

REPORT INFORMATION
  Report Type: Spontaneous
  Country: JP (occurrence: JP)
  Receive Date: 20240905
  Receipt Date: 20250122
  Transmission Date: 20250409
  Serious: Yes (Hospitalization)
  Sender: ROCHE
  Company Number: JP-CHEPLA-2024011223

PATIENT
  Age: 3 Month
  Sex: Female
  Weight: 2 kg

DRUGS (11)
  1. VALGANCICLOVIR [Suspect]
     Active Substance: VALGANCICLOVIR
     Indication: Congenital cytomegalovirus infection
     Route: 048
     Dates: start: 20231122, end: 20231204
  2. VALGANCICLOVIR [Suspect]
     Active Substance: VALGANCICLOVIR
     Dosage: DRY SYRUP
     Route: 048
     Dates: start: 20231205, end: 20231212
  3. VALGANCICLOVIR [Suspect]
     Active Substance: VALGANCICLOVIR
     Dosage: DRY SYRUP
     Route: 048
     Dates: start: 20231213, end: 20231227
  4. VALGANCICLOVIR [Suspect]
     Active Substance: VALGANCICLOVIR
     Dosage: DRY SYRUP
     Route: 048
     Dates: start: 20231228, end: 20240103
  5. VALGANCICLOVIR [Suspect]
     Active Substance: VALGANCICLOVIR
     Dosage: DRY SYRUP
     Route: 048
     Dates: start: 20240116, end: 20240125
  6. VALGANCICLOVIR [Suspect]
     Active Substance: VALGANCICLOVIR
     Dosage: DRY SYRUP, BID
     Route: 048
     Dates: start: 20240126, end: 20240205
  7. GANCICLOVIR [Suspect]
     Active Substance: GANCICLOVIR
     Indication: Product used for unknown indication
     Route: 065
     Dates: start: 20231026
  8. ALFAROL [Concomitant]
     Active Substance: ALFACALCIDOL
     Route: 065
     Dates: start: 20231113
  9. HERBALS [Concomitant]
     Active Substance: HERBALS
     Route: 065
     Dates: start: 20231208
  10. Incremin [Concomitant]
     Route: 065
     Dates: start: 20231102
  11. HERBAL NOS [Concomitant]
     Active Substance: HERBALS
     Route: 065
     Dates: start: 20240207

REACTIONS (3)
  - Off label use [Unknown]
  - Neutrophil count decreased [Recovered/Resolved]
  - Off label use [Unknown]

NARRATIVE: CASE EVENT DATE: 20240213
